FAERS Safety Report 5069411-8 (Version None)
Quarter: 2006Q3

REPORT INFORMATION
  Report Type: 
  Country: None (occurrence: None)
  Receive Date: 20060803
  Receipt Date: 20060724
  Transmission Date: 20061208
  Serious: Yes (Other)
  Sender: FDA-Public Use
  Company Number: US-JNJFOC-20060705001

PATIENT
  Age: 16 Year
  Sex: Male

DRUGS (2)
  1. REMICADE [Suspect]
     Dosage: RECHALLENGE
     Route: 042
  2. REMICADE [Suspect]
     Indication: CROHN'S DISEASE
     Dosage: RECEIVED INFUSIONS ^REGUALARLY^ OVER A 4 YEAR PERIOD.
     Route: 042

REACTIONS (4)
  - ANTINUCLEAR ANTIBODY INCREASED [None]
  - DOUBLE STRANDED DNA ANTIBODY [None]
  - ECZEMA INFECTED [None]
  - HISTONE ANTIBODY POSITIVE [None]
